FAERS Safety Report 7269282-5 (Version None)
Quarter: 2011Q1

REPORT INFORMATION
  Report Type: 
  Country: None (occurrence: None)
  Receive Date: 20110124
  Receipt Date: 20101124
  Transmission Date: 20110831
  Serious: Yes (Hospitalization)
  Sender: FDA-Public Use
  Company Number: 2010-01008

PATIENT
  Age: 47 Year
  Sex: Female
  Weight: 63.5036 kg

DRUGS (2)
  1. ZICAM COLD REMEDY ZAVORS [Suspect]
     Indication: NASOPHARYNGITIS
     Dosage: ONE DOSE
     Dates: start: 20101119
  2. MULTI-VITAMIN [Concomitant]

REACTIONS (9)
  - RASH PUSTULAR [None]
  - DRUG INEFFECTIVE [None]
  - RASH PRURITIC [None]
  - RASH ERYTHEMATOUS [None]
  - RASH GENERALISED [None]
  - FATIGUE [None]
  - DERMATITIS CONTACT [None]
  - HYPERSENSITIVITY [None]
  - ARTHRALGIA [None]
